FAERS Safety Report 10751636 (Version 1)
Quarter: 2015Q1

REPORT INFORMATION
  Report Type: Spontaneous
  Country: IR (occurrence: None)
  Receive Date: 20150128
  Receipt Date: 20150128
  Transmission Date: 20150721
  Serious: Yes (Life-Threatening, Hospitalization)
  Sender: FDA-Public Use
  Company Number: NSR_01769_2015

PATIENT
  Age: 41 Year
  Sex: Male

DRUGS (3)
  1. TRAMADOL (TRAMADOL) [Suspect]
     Active Substance: TRAMADOL
     Indication: DRUG DEPENDENCE
     Dosage: DF
     Dates: start: 2004
  2. BENZODIAZEPINE DERIVATIVES (BENZODIAZEPINE DERIVATIVES) [Suspect]
     Active Substance: BENZODIAZEPINE
     Indication: DRUG DEPENDENCE
     Dosage: DF
  3. NALTREXONE (NALTREXONE) [Suspect]
     Active Substance: NALTREXONE
     Indication: DRUG DEPENDENCE
     Dosage: DF

REACTIONS (4)
  - Seizure [None]
  - Serotonin syndrome [None]
  - Withdrawal syndrome [None]
  - Rhabdomyolysis [None]

NARRATIVE: CASE EVENT DATE: 20120913
